FAERS Safety Report 4698749-9 (Version None)
Quarter: 2005Q2

REPORT INFORMATION
  Report Type: 
  Country: None (occurrence: None)
  Receive Date: 20050621
  Receipt Date: 20050316
  Transmission Date: 20051028
  Serious: Yes (Other)
  Sender: FDA-Public Use
  Company Number: 2005047089

PATIENT
  Sex: Male

DRUGS (1)
  1. VFEND [Suspect]
     Indication: ILL-DEFINED DISORDER
     Dosage: 600 MG (300 MG,2 IN 1 D)

REACTIONS (2)
  - GYNAECOMASTIA [None]
  - NIPPLE PAIN [None]
